FAERS Safety Report 8549363-6 (Version None)
Quarter: 2012Q3

REPORT INFORMATION
  Report Type: 
  Country: None (occurrence: None)
  Receive Date: 20120730
  Receipt Date: 20120720
  Transmission Date: 20120928
  Serious: Yes (Other)
  Sender: FDA-Public Use
  Company Number: US-VERTEX PHARMACEUTICALS INC.-AE-2012-008247

PATIENT
  Sex: Female
  Weight: 49.94 kg

DRUGS (5)
  1. SERTRALINE HYDROCHLORIDE [Concomitant]
  2. INCIVEK [Suspect]
     Indication: HEPATITIS C
     Route: 048
     Dates: start: 20120525
  3. RIBAVIRIN [Concomitant]
     Indication: HEPATITIS C
     Route: 048
     Dates: start: 20120525
  4. LORAZEPAM [Concomitant]
  5. PEGASYS [Concomitant]
     Indication: HEPATITIS C
     Route: 058
     Dates: start: 20120525

REACTIONS (11)
  - EMOTIONAL DISORDER [None]
  - MUSCULOSKELETAL STIFFNESS [None]
  - HAEMORRHOIDAL HAEMORRHAGE [None]
  - ANORECTAL DISCOMFORT [None]
  - DECREASED APPETITE [None]
  - RASH GENERALISED [None]
  - DIARRHOEA [None]
  - ANAL PRURITUS [None]
  - TREMOR [None]
  - HAEMATOCHEZIA [None]
  - PRURITUS [None]
